FAERS Safety Report 20426656 (Version 1)
Quarter: 2022Q1

REPORT INFORMATION
  Report Type: Report from Study
  Country: US (occurrence: US)
  Receive Date: 20220204
  Receipt Date: 20220204
  Transmission Date: 20220423
  Serious: No
  Sender: FDA-Public Use
  Company Number: US-EXELIXIS-CABO-21045626

PATIENT
  Sex: Female

DRUGS (3)
  1. CABOMETYX [Suspect]
     Active Substance: CABOZANTINIB S-MALATE
     Indication: Hepatic cancer
     Dosage: 20 MG, QD
     Route: 048
     Dates: start: 202107, end: 202107
  2. CABOMETYX [Suspect]
     Active Substance: CABOZANTINIB S-MALATE
     Indication: Anaemia vitamin B12 deficiency
  3. LENVIMA [Concomitant]
     Active Substance: LENVATINIB

REACTIONS (2)
  - Inflammation [Unknown]
  - Dyspnoea [Unknown]
